FAERS Safety Report 9546870 (Version 1)
Quarter: 2013Q2

REPORT INFORMATION
  Report Type: Spontaneous
  Country: US (occurrence: None)
  Receive Date: 20130524
  Receipt Date: 20130524
  Transmission Date: 20140414
  Serious: No
  Sender: FDA-Public Use
  Company Number: PHEH2012US024767

PATIENT
  Age: 59 Year
  Sex: Female
  Weight: 59 kg

DRUGS (6)
  1. GILENYA (FINGOLIMOD) CAPSULE, 0.5MG [Suspect]
     Indication: MULTIPLE SCLEROSIS
     Route: 048
     Dates: start: 20121016
  2. EFFEXOR (VENLAFAXINE HYDROCHLORIDE) UNKNOWN [Concomitant]
  3. TRAZODONE (TRAZODONE) [Concomitant]
  4. ZODOR (SIMVASTATIN) [Concomitant]
  5. OXYTROL (OXYBUTYNIN) PATCH [Concomitant]
  6. PROVIGIL (MODAFINIL) [Concomitant]

REACTIONS (8)
  - Feeling hot [None]
  - Eye irritation [None]
  - Feeling abnormal [None]
  - Influenza like illness [None]
  - Nausea [None]
  - Pyrexia [None]
  - Diarrhoea [None]
  - Back pain [None]
